FAERS Safety Report 18453073 (Version 1)
Quarter: 2020Q4

REPORT INFORMATION
  Report Type: Spontaneous
  Country: FR (occurrence: FR)
  Receive Date: 20201102
  Receipt Date: 20201102
  Transmission Date: 20210114
  Serious: Yes (Life-Threatening, Hospitalization)
  Sender: FDA-Public Use
  Company Number: FR-TEVA-2020-FR-1843387

PATIENT
  Age: 17 Year
  Sex: Male

DRUGS (7)
  1. ALPRAZOLAM. [Suspect]
     Active Substance: ALPRAZOLAM
     Dosage: 4 TO 5 TABLETS PER DOSE REGULARLY
     Route: 048
  2. DONORMYL (DOXYLAMINE SUCCINATE) [Suspect]
     Active Substance: DOXYLAMINE SUCCINATE
     Route: 048
  3. SERESTA [Suspect]
     Active Substance: OXAZEPAM
     Route: 048
  4. CODOLIPRANE [Suspect]
     Active Substance: ACETAMINOPHEN\CODEINE PHOSPHATE
     Dosage: VERY REGULAR
     Route: 048
  5. METHADONE [Suspect]
     Active Substance: METHADONE HYDROCHLORIDE
     Route: 065
  6. VALIUM [Suspect]
     Active Substance: DIAZEPAM
     Route: 048
  7. TRAMADOL BASE [Suspect]
     Active Substance: TRAMADOL
     Dosage: 200 TO 400 MG / DAY
     Route: 048

REACTIONS (2)
  - Drug dependence [Not Recovered/Not Resolved]
  - Toxicity to various agents [Not Recovered/Not Resolved]
